FAERS Safety Report 11124510 (Version 1)
Quarter: 2015Q2

REPORT INFORMATION
  Report Type: Spontaneous
  Country: US (occurrence: None)
  Receive Date: 20150518
  Receipt Date: 20150518
  Transmission Date: 20150821
  Serious: Yes (Hospitalization)
  Sender: FDA-Public Use
  Company Number: INS201505-000166

PATIENT
  Age: 50 Year
  Sex: Female
  Weight: 72.12 kg

DRUGS (1)
  1. SUBSYS [Suspect]
     Active Substance: FENTANYL
     Indication: PAIN
     Route: 060

REACTIONS (5)
  - Pain [None]
  - Sepsis [None]
  - Off label use [None]
  - Device related infection [None]
  - Drug dose omission [None]

NARRATIVE: CASE EVENT DATE: 20150127
